FAERS Safety Report 13876433 (Version 5)
Quarter: 2018Q1

REPORT INFORMATION
  Report Type: Report from Study
  Country: US (occurrence: US)
  Receive Date: 20170817
  Receipt Date: 20180216
  Transmission Date: 20180508
  Serious: Yes (Hospitalization)
  Sender: FDA-Public Use
  Company Number: US-EISAI MEDICAL RESEARCH-EC-2017-029803

PATIENT
  Sex: Male
  Weight: 61 kg

DRUGS (23)
  1. AMLODIPINE [Concomitant]
     Active Substance: AMLODIPINE BESYLATE
  2. OXYCODONE [Concomitant]
     Active Substance: OXYCODONE
  3. URSODIOL. [Concomitant]
     Active Substance: URSODIOL
  4. LENVIMA [Suspect]
     Active Substance: LENVATINIB
     Indication: THYROID CANCER
     Route: 048
     Dates: start: 20170721, end: 2017
  5. TAMSULOSIN [Concomitant]
     Active Substance: TAMSULOSIN
  6. NITROGLYCERIN PATCH [Concomitant]
     Active Substance: NITROGLYCERIN
  7. CARVEDILOL. [Concomitant]
     Active Substance: CARVEDILOL
  8. BIOTENE MOUTHWASH [Concomitant]
     Active Substance: CETYLPYRIDINIUM CHLORIDE
  9. LENVIMA [Suspect]
     Active Substance: LENVATINIB
     Route: 048
     Dates: start: 201708, end: 2017
  10. OXYBUTYNIN. [Concomitant]
     Active Substance: OXYBUTYNIN CHLORIDE
  11. VITAMIN D3 [Concomitant]
     Active Substance: CHOLECALCIFEROL
  12. BENICAR [Concomitant]
     Active Substance: OLMESARTAN MEDOXOMIL
  13. LENVIMA [Suspect]
     Active Substance: LENVATINIB
     Route: 048
     Dates: start: 2017, end: 201710
  14. LENVIMA [Suspect]
     Active Substance: LENVATINIB
     Route: 048
     Dates: start: 20180205
  15. FUROSEMIDE. [Concomitant]
     Active Substance: FUROSEMIDE
  16. MULTIVITAMIN [Concomitant]
     Active Substance: VITAMINS
  17. KIONEX [Concomitant]
     Active Substance: SODIUM POLYSTYRENE SULFONATE
  18. LEVOXYL [Concomitant]
     Active Substance: LEVOTHYROXINE SODIUM
  19. PAROXETINE. [Concomitant]
     Active Substance: PAROXETINE
  20. CARAFATE [Concomitant]
     Active Substance: SUCRALFATE
  21. URSODIOL. [Concomitant]
     Active Substance: URSODIOL
  22. ROSUVASTATIN. [Concomitant]
     Active Substance: ROSUVASTATIN
  23. CQ 10 [Concomitant]

REACTIONS (11)
  - Chills [Not Recovered/Not Resolved]
  - Fatigue [Unknown]
  - Vomiting [Unknown]
  - Asthenia [Not Recovered/Not Resolved]
  - Frequent bowel movements [Unknown]
  - Dysgeusia [Unknown]
  - Blood pressure increased [Not Recovered/Not Resolved]
  - Pyrexia [Unknown]
  - Diarrhoea [Not Recovered/Not Resolved]
  - Weight decreased [Not Recovered/Not Resolved]
  - Decreased appetite [Not Recovered/Not Resolved]

NARRATIVE: CASE EVENT DATE: 2017
